APPROVED DRUG PRODUCT: DIFFERIN
Active Ingredient: ADAPALENE
Strength: 0.1%
Dosage Form/Route: CREAM;TOPICAL
Application: N020748 | Product #001 | TE Code: AB
Applicant: GALDERMA LABORATORIES LP
Approved: May 26, 2000 | RLD: Yes | RS: Yes | Type: RX